FAERS Safety Report 4534841-7 (Version None)
Quarter: 2004Q4

REPORT INFORMATION
  Report Type: 
  Country: None (occurrence: None)
  Receive Date: 20041222
  Receipt Date: 20040423
  Transmission Date: 20050328
  Serious: No
  Sender: FDA-Public Use
  Company Number: US-BRISTOL-MYERS SQUIBB COMPANY-12571014

PATIENT
  Age: 72 Year
  Sex: Female
  Weight: 61 kg

DRUGS (6)
  1. PRAVACHOL [Suspect]
     Indication: BLOOD CHOLESTEROL INCREASED
     Dosage: INCREASED FROM 20 MG DAILY AFTER ONE YEAR OF THERAPY
     Route: 048
  2. ZANTAC [Concomitant]
  3. AVAPRO [Concomitant]
  4. DITROPAN XL [Concomitant]
  5. HYDROCHLOROTHIAZIDE [Concomitant]
  6. EVISTA [Concomitant]

REACTIONS (2)
  - PRURITUS [None]
  - RASH [None]
